FAERS Safety Report 7177075-2 (Version None)
Quarter: 2010Q4

REPORT INFORMATION
  Report Type: 
  Country: None (occurrence: None)
  Receive Date: 20101220
  Receipt Date: 20101213
  Transmission Date: 20110411
  Serious: Yes (Hospitalization)
  Sender: FDA-Public Use
  Company Number: US-JNJCH-2010028915

PATIENT
  Age: 65 Year
  Sex: Male
  Weight: 77.1 kg

DRUGS (1)
  1. MULTI-SYMPTOM ROLAIDS PLUS ANTI-GAS SOFTCHEWS FRUIT [Suspect]
     Indication: PRODUCT USED FOR UNKNOWN INDICATION
     Dosage: TEXT:TWO CHEWABLES ONCE
     Route: 048
     Dates: start: 20101016, end: 20101016

REACTIONS (3)
  - ABDOMINAL DISTENSION [None]
  - MALAISE [None]
  - PRODUCT QUALITY ISSUE [None]
